FAERS Safety Report 7397510-4 (Version None)
Quarter: 2011Q2

REPORT INFORMATION
  Report Type: 
  Country: None (occurrence: None)
  Receive Date: 20110406
  Receipt Date: 20110404
  Transmission Date: 20111010
  Serious: Yes (Hospitalization)
  Sender: FDA-Public Use
  Company Number: US-PFIZER INC-A026691

PATIENT
  Age: 23 Year
  Sex: Female

DRUGS (2)
  1. SERTRALINE HYDROCHLORIDE [Suspect]
     Dosage: DAILY
     Route: 048
  2. METOCLOPRAMIDE HYDROCHLORIDE [Interacting]
     Dosage: QID
     Route: 048

REACTIONS (2)
  - DRUG INTERACTION [None]
  - DYSTONIA [None]
